FAERS Safety Report 17167143 (Version 1)
Quarter: 2019Q4

REPORT INFORMATION
  Report Type: Report from Study
  Country: US (occurrence: US)
  Receive Date: 20191217
  Receipt Date: 20191217
  Transmission Date: 20200122
  Serious: Yes (Other)
  Sender: FDA-Public Use
  Company Number: US-BIOGEN-2019BI00781011

PATIENT
  Age: 77 Year
  Sex: Female

DRUGS (2)
  1. PLEGRIDY [Suspect]
     Active Substance: PEGINTERFERON BETA-1A
     Indication: MULTIPLE SCLEROSIS
     Route: 058
     Dates: start: 20190731, end: 20191209
  2. PLEGRIDY [Suspect]
     Active Substance: PEGINTERFERON BETA-1A
     Indication: MULTIPLE SCLEROSIS
     Route: 058
     Dates: start: 20190731

REACTIONS (11)
  - Fatigue [Recovered/Resolved with Sequelae]
  - Hypersomnia [Recovered/Resolved with Sequelae]
  - Diarrhoea [Unknown]
  - Arthralgia [Unknown]
  - Body temperature increased [Recovered/Resolved]
  - Injection site erythema [Not Recovered/Not Resolved]
  - Headache [Unknown]
  - Pain [Unknown]
  - Paralysis [Recovered/Resolved]
  - Influenza like illness [Unknown]
  - Injection site swelling [Not Recovered/Not Resolved]

NARRATIVE: CASE EVENT DATE: 20191108
